FAERS Safety Report 6130904-3 (Version None)
Quarter: 2009Q1

REPORT INFORMATION
  Report Type: 
  Country: None (occurrence: None)
  Receive Date: 20090325
  Receipt Date: 20090318
  Transmission Date: 20090719
  Serious: Yes (Hospitalization)
  Sender: FDA-Public Use
  Company Number: GB-ASTRAZENECA-2009GB00718

PATIENT
  Sex: Male
  Weight: 73.4 kg

DRUGS (3)
  1. OMEPRAZOLE [Suspect]
     Route: 048
     Dates: start: 20090109, end: 20090209
  2. LYMECYCLINE [Suspect]
     Indication: ACNE
     Route: 048
     Dates: start: 20090119, end: 20090209
  3. CHLORAMPHENICOL [Concomitant]
     Route: 047

REACTIONS (1)
  - GLOMERULONEPHRITIS MINIMAL LESION [None]
